FAERS Safety Report 5232650-7 (Version None)
Quarter: 2007Q1

REPORT INFORMATION
  Report Type: 
  Country: None (occurrence: None)
  Receive Date: 20070206
  Receipt Date: 20070206
  Transmission Date: 20070707
  Serious: Yes (Life-Threatening, Hospitalization)
  Sender: FDA-Public Use
  Company Number: None

PATIENT
  Age: 53 Year
  Sex: Male
  Weight: 93.441 kg

DRUGS (8)
  1. PEG-INTERFERON ALPHA-2A [Suspect]
     Indication: HEPATITIS C
     Dosage: 180MCG/0.5ML WEEKLY SC
     Route: 058
     Dates: start: 20060101, end: 20061125
  2. QUININE [Suspect]
     Indication: MUSCLE SPASMS
     Dosage: 325MG DAILY PO
     Route: 048
     Dates: start: 20060901, end: 20061125
  3. SEROQUEL [Concomitant]
  4. LITHIUM CARBONATE [Concomitant]
  5. BENADRYL [Concomitant]
  6. THIAMINE [Concomitant]
  7. GABAPENTIN [Concomitant]
  8. FLUNISOLIDE [Concomitant]

REACTIONS (5)
  - EPISTAXIS [None]
  - MOUTH HAEMORRHAGE [None]
  - PAIN IN EXTREMITY [None]
  - SKIN DISCOLOURATION [None]
  - THROMBOCYTOPENIA [None]
